FAERS Safety Report 6214229-3 (Version None)
Quarter: 2009Q2

REPORT INFORMATION
  Report Type: 
  Country: None (occurrence: None)
  Receive Date: 20090604
  Receipt Date: 20090521
  Transmission Date: 20091009
  Serious: Yes (Other)
  Sender: FDA-Public Use
  Company Number: PHHY2009PL19236

PATIENT
  Sex: Female

DRUGS (6)
  1. PAMIDRONATE DISODIUM [Suspect]
     Indication: OSTEOGENESIS IMPERFECTA
     Dosage: 0.25 MG/KG
     Route: 042
  2. PAMIDRONATE DISODIUM [Suspect]
     Dosage: 0.50 MG/KG
     Route: 042
  3. PAMIDRONATE DISODIUM [Suspect]
     Dosage: 0.38 MG/KG
     Route: 042
  4. PAMIDRONATE DISODIUM [Suspect]
     Dosage: 0.75 MG/KG
     Route: 042
  5. PAMIDRONATE DISODIUM [Suspect]
     Dosage: 0.50 MG/KG
     Route: 042
  6. PAMIDRONATE DISODIUM [Suspect]
     Dosage: 1.00 MG/KG
     Route: 042

REACTIONS (4)
  - BONE DISORDER [None]
  - FRACTURE [None]
  - HYPOCALCAEMIA [None]
  - PYREXIA [None]
